FAERS Safety Report 8910815 (Version 2)
Quarter: 2013Q2

REPORT INFORMATION
  Report Type: Report from Study
  Country: JP (occurrence: JP)
  Receive Date: 20121115
  Receipt Date: 20130531
  Transmission Date: 20140414
  Serious: Yes (Hospitalization)
  Sender: FDA-Public Use
  Company Number: JP-009507513-1211JPN004237

PATIENT
  Age: 1 Month
  Sex: Male

DRUGS (12)
  1. DIAZOXIDE CAPSULES 25 MG?MSD? [Suspect]
     Indication: HYPOGLYCAEMIA
     Dosage: 5.3 MG, TID
     Route: 048
     Dates: start: 20110630, end: 20110702
  2. DIAZOXIDE CAPSULES 25 MG?MSD? [Suspect]
     Dosage: 7 MG, TID
     Route: 048
     Dates: start: 20110703, end: 20110712
  3. DIAZOXIDE CAPSULES 25 MG?MSD? [Suspect]
     Dosage: 5.7 MG, TID
     Route: 048
     Dates: start: 20110713, end: 20110715
  4. DIAZOXIDE CAPSULES 25 MG?MSD? [Suspect]
     Dosage: 4.3 MG, TID
     Route: 048
     Dates: start: 20110716, end: 20110719
  5. DIAZOXIDE CAPSULES 25 MG?MSD? [Suspect]
     Dosage: 3 MG, TID
     Route: 048
     Dates: start: 20110720, end: 20110724
  6. DOPAMINE HYDROCHLORIDE [Concomitant]
     Indication: HYPOGLYCAEMIA
     Dosage: 24 MG, QD
     Route: 042
     Dates: start: 20110619, end: 20110624
  7. DOBUTAMINE HYDROCHLORIDE [Concomitant]
     Indication: HYPOGLYCAEMIA
     Dosage: 24 MG, QD
     Route: 042
     Dates: start: 20110619, end: 20110623
  8. CALCICOL [Concomitant]
     Indication: HYPOGLYCAEMIA
     Dosage: 10 ML, UNK
     Route: 042
     Dates: start: 20110619, end: 20110626
  9. VICCILLIN [Concomitant]
     Indication: HYPOGLYCAEMIA
     Dosage: 240 MG, UNK
     Route: 042
     Dates: start: 20110619, end: 20110628
  10. AMIKACIN [Concomitant]
     Indication: HYPOGLYCAEMIA
     Dosage: 10 MG, UNK
     Route: 042
     Dates: start: 20110619, end: 20110628
  11. FLUCONAZOLE [Concomitant]
     Indication: FUNGAL INFECTION
     Dosage: 9 MG, UNK
     Route: 042
     Dates: start: 20110630, end: 20110701
  12. HABEKACIN [Concomitant]
     Indication: STAPHYLOCOCCAL INFECTION
     Dosage: 9 MG, UNK
     Route: 042
     Dates: start: 20110630, end: 20110704

REACTIONS (3)
  - Oedema [Recovered/Resolved]
  - Urine output decreased [Recovered/Resolved]
  - Cholestasis [Recovering/Resolving]
